FAERS Safety Report 7681221-1 (Version None)
Quarter: 2011Q3

REPORT INFORMATION
  Report Type: 
  Country: None (occurrence: None)
  Receive Date: 20110804
  Receipt Date: 20110725
  Transmission Date: 20111222
  Serious: Yes (Hospitalization)
  Sender: FDA-Public Use
  Company Number: 2011SP030607

PATIENT
  Age: 37 Year
  Sex: Female
  Weight: 57 kg

DRUGS (1)
  1. NEXPLANON [Suspect]
     Dosage: 1 DF;  SC
     Route: 058
     Dates: start: 20110119, end: 20110719

REACTIONS (5)
  - WOUND INFECTION [None]
  - ALOPECIA [None]
  - AMENORRHOEA [None]
  - SUPERINFECTION [None]
  - INGROWN HAIR [None]
